FAERS Safety Report 8058026-5 (Version None)
Quarter: 2012Q1

REPORT INFORMATION
  Report Type: 
  Country: None (occurrence: None)
  Receive Date: 20120113
  Receipt Date: 20120102
  Transmission Date: 20120608
  Serious: Yes (Other)
  Sender: FDA-Public Use
  Company Number: EU-2012-10001

PATIENT
  Sex: Female
  Weight: 60 kg

DRUGS (10)
  1. CARMEN (LERANIDIPINE) [Concomitant]
  2. FRAGMIN [Concomitant]
  3. TORSEMIDE [Concomitant]
  4. ASPIRIN [Concomitant]
  5. CEFTRIAXONE [Concomitant]
  6. CLARITHROMYCIN [Concomitant]
  7. COLCHIN (COLCHICINE) [Concomitant]
  8. SAMSCA [Suspect]
     Indication: HYPONATRAEMIA
     Dosage: 7.5 MG MILLIGRAM(S), DAILY DOSE, ORA
     Route: 048
     Dates: start: 20111221
  9. ALACEND (CANDESARTAN CILEXETIL) [Concomitant]
  10. NEBIVOLOL HCL [Concomitant]

REACTIONS (2)
  - HYPOKALAEMIA [None]
  - WRONG TECHNIQUE IN DRUG USAGE PROCESS [None]
